FAERS Safety Report 7676186-2 (Version None)
Quarter: 2011Q3

REPORT INFORMATION
  Report Type: 
  Country: None (occurrence: None)
  Receive Date: 20110805
  Receipt Date: 20110721
  Transmission Date: 20111222
  Serious: Yes (Hospitalization, Other)
  Sender: FDA-Public Use
  Company Number: 2011MA009263

PATIENT
  Age: 49 Year
  Sex: Male

DRUGS (1)
  1. SULFATRIM PEDIATRIC [Suspect]
     Indication: STAPHYLOCOCCAL INFECTION
     Dates: start: 20080101

REACTIONS (20)
  - SKIN GRAFT [None]
  - IMPAIRED HEALING [None]
  - WHEELCHAIR USER [None]
  - TREATMENT FAILURE [None]
  - MOBILITY DECREASED [None]
  - DERMATITIS ALLERGIC [None]
  - NAUSEA [None]
  - DISEASE RECURRENCE [None]
  - ANAEMIA [None]
  - POOR PERIPHERAL CIRCULATION [None]
  - JOINT RANGE OF MOTION DECREASED [None]
  - AMPUTATION [None]
  - SCAR [None]
  - PYREXIA [None]
  - VOMITING [None]
  - BLOOD CREATININE INCREASED [None]
  - RENAL IMPAIRMENT [None]
  - INFLAMMATION [None]
  - TOXICITY TO VARIOUS AGENTS [None]
  - STAPHYLOCOCCAL OSTEOMYELITIS [None]
